FAERS Safety Report 5059350-0 (Version None)
Quarter: 2006Q3

REPORT INFORMATION
  Report Type: 
  Country: None (occurrence: None)
  Receive Date: 20060724
  Receipt Date: 20060712
  Transmission Date: 20061208
  Serious: Yes (Hospitalization)
  Sender: FDA-Public Use
  Company Number: FR-BRISTOL-MYERS SQUIBB COMPANY-13445945

PATIENT
  Age: 95 Year
  Sex: Male

DRUGS (5)
  1. FOZIRETIC TABS [Suspect]
     Indication: MALIGNANT HYPERTENSION
     Route: 048
     Dates: start: 20040501, end: 20060518
  2. FOZIRETIC TABS [Suspect]
     Indication: AORTIC VALVE INCOMPETENCE
     Route: 048
     Dates: start: 20040501, end: 20060518
  3. ASPIRIN [Suspect]
     Dosage: DURATION: 8 YEARS
     Route: 048
  4. ATENOLOL [Suspect]
     Dosage: DURATION: 8 YEARS
     Route: 048
  5. LOXEN [Concomitant]
     Dates: start: 20060501

REACTIONS (1)
  - MOUTH ULCERATION [None]
